FAERS Safety Report 8418395-0 (Version None)
Quarter: 2012Q2

REPORT INFORMATION
  Report Type: 
  Country: None (occurrence: None)
  Receive Date: 20120607
  Receipt Date: 20120601
  Transmission Date: 20120825
  Serious: Yes (Death, Life-Threatening, Other)
  Sender: FDA-Public Use
  Company Number: JP-PFIZER INC-2011288201

PATIENT
  Age: 81 Year
  Sex: Male
  Weight: 46 kg

DRUGS (1)
  1. ZOSYN [Suspect]
     Indication: PNEUMONIA ASPIRATION
     Dosage: 4.5 G, 3X/DAY
     Route: 041
     Dates: start: 20110928, end: 20111018

REACTIONS (3)
  - LIVER DISORDER [None]
  - BONE MARROW FAILURE [None]
  - PNEUMONIA ASPIRATION [None]
